FAERS Safety Report 11940936 (Version 2)
Quarter: 2016Q1

REPORT INFORMATION
  Report Type: Report from Study
  Country: SE (occurrence: SE)
  Receive Date: 20160122
  Receipt Date: 20160122
  Transmission Date: 20160526
  Serious: Yes (Hospitalization)
  Sender: FDA-Public Use
  Company Number: SE-ABBVIE-16P-150-1541141-00

PATIENT
  Age: 74 Year
  Sex: Male

DRUGS (1)
  1. DUODOPA [Suspect]
     Active Substance: CARBIDOPA\LEVODOPA
     Indication: PARKINSON^S DISEASE
     Route: 050
     Dates: start: 20141022

REACTIONS (5)
  - Bladder catheterisation [Recovered/Resolved]
  - Device alarm issue [Recovered/Resolved]
  - Incorrect route of drug administration [Recovered/Resolved]
  - Neurogenic bladder [Unknown]
  - Device occlusion [Unknown]

NARRATIVE: CASE EVENT DATE: 20160115
